FAERS Safety Report 15713723 (Version 1)
Quarter: 2018Q4

REPORT INFORMATION
  Report Type: Spontaneous
  Country: US (occurrence: US)
  Receive Date: 20181129
  Receipt Date: 20181129
  Transmission Date: 20190205
  Serious: No
  Sender: FDA-Public Use
  Company Number: None

PATIENT
  Age: 88 Year
  Sex: Male
  Weight: 70.31 kg

DRUGS (1)
  1. AMOXICILLIN AND CLAVULANATE POTASSIUM TABLETS 500MG/125MG [Suspect]
     Active Substance: AMOXICILLIN\CLAVULANATE POTASSIUM
     Indication: EAR INFECTION
     Dosage: ?          QUANTITY:500/C/AVK 125 MG ;OTHER FREQUENCY:1 TAB TWICE A DAY;?
     Route: 048
     Dates: start: 20181004, end: 20181004

REACTIONS (1)
  - Vomiting [None]

NARRATIVE: CASE EVENT DATE: 20181004
